FAERS Safety Report 14119224 (Version 1)
Quarter: 2017Q4

REPORT INFORMATION
  Report Type: Spontaneous
  Country: US (occurrence: US)
  Receive Date: 20171023
  Receipt Date: 20171023
  Transmission Date: 20180321
  Serious: Yes (Disabling)
  Sender: FDA-Public Use
  Company Number: None

PATIENT
  Age: 61 Year
  Sex: Female
  Weight: 50.85 kg

DRUGS (7)
  1. DAILY VITAMIN [Concomitant]
     Active Substance: VITAMINS
  2. VITAMIN D [Concomitant]
     Active Substance: CHOLECALCIFEROL
  3. MAGNESIUM GLYCINATE [Concomitant]
     Active Substance: MAGNESIUM GLYCINATE
  4. CLONAZEPAM. [Concomitant]
     Active Substance: CLONAZEPAM
  5. BOTOX [Suspect]
     Active Substance: ONABOTULINUMTOXINA
     Indication: TORTICOLLIS
     Route: 030
  6. FISH OIL [Concomitant]
     Active Substance: FISH OIL
  7. VITAMIN B COMPLEX [Concomitant]
     Active Substance: CYANOCOBALAMIN\DEXPANTHENOL\NIACINAMIDE\PYRIDOXINE HYDROCHLORIDE\RIBOFLAVIN 5^-PHOSPHATE SODIUM\THIAMINE HYDROCHLORIDE\VITAMIN B COMPLEX

REACTIONS (8)
  - Dystonia [None]
  - Condition aggravated [None]
  - Confusional state [None]
  - Anxiety [None]
  - Dyskinesia [None]
  - Muscle rigidity [None]
  - Muscle twitching [None]
  - Depression [None]

NARRATIVE: CASE EVENT DATE: 20171017
